FAERS Safety Report 5416998-9 (Version None)
Quarter: 2007Q3

REPORT INFORMATION
  Report Type: 
  Country: None (occurrence: None)
  Receive Date: 20070816
  Receipt Date: 20070810
  Transmission Date: 20080115
  Serious: Yes (Disabling)
  Sender: FDA-Public Use
  Company Number: JP-ASTRAZENECA-2007AP04906

PATIENT
  Age: 524 Month
  Sex: Female
  Weight: 54 kg

DRUGS (8)
  1. NOLVADEX [Suspect]
     Indication: BREAST CANCER
     Route: 048
     Dates: start: 20000901, end: 20070701
  2. ZOLADEX [Suspect]
     Indication: BREAST CANCER
     Route: 058
     Dates: start: 20000901, end: 20020901
  3. HALCION [Concomitant]
     Indication: INSOMNIA
     Route: 048
     Dates: start: 20050126, end: 20070301
  4. MAGLAX [Concomitant]
     Indication: CONSTIPATION
     Route: 048
     Dates: start: 20050518
  5. ZYRTEC [Concomitant]
     Indication: RHINITIS ALLERGIC
     Route: 048
     Dates: start: 20050907
  6. RIZE [Concomitant]
     Route: 048
  7. LAUGHING GAS [Concomitant]
  8. PROPOFOL [Concomitant]

REACTIONS (1)
  - OPTIC ISCHAEMIC NEUROPATHY [None]
